FAERS Safety Report 6143881-6 (Version None)
Quarter: 2009Q2

REPORT INFORMATION
  Report Type: 
  Country: None (occurrence: None)
  Receive Date: 20090405
  Receipt Date: 20090323
  Transmission Date: 20091009
  Serious: Yes (Other)
  Sender: FDA-Public Use
  Company Number: FR-PFIZER INC-2009187522

PATIENT

DRUGS (1)
  1. CABERGOLINE [Suspect]

REACTIONS (1)
  - VISUAL FIELD DEFECT [None]
